FAERS Safety Report 8575876-7 (Version None)
Quarter: 2012Q2

REPORT INFORMATION
  Report Type: 
  Country: None (occurrence: None)
  Receive Date: 20120423
  Receipt Date: 20100209
  Transmission Date: 20120825
  Serious: Yes (Other)
  Sender: FDA-Public Use
  Company Number: PHEH2010US01558

PATIENT
  Age: 39 Year
  Sex: Male
  Weight: 138 kg

DRUGS (9)
  1. MYFORTIC [Concomitant]
  2. EXJADE [Suspect]
     Indication: IRON OVERLOAD
     Dosage: 500 MG, QID, ORAL, 10 MG/KG/DAY (1500 MG/DAY), ORAL
     Route: 048
     Dates: start: 20090701, end: 20091214
  3. EXJADE [Suspect]
     Indication: TRANSFUSION RELATED COMPLICATION
     Dosage: 500 MG, QID, ORAL, 10 MG/KG/DAY (1500 MG/DAY), ORAL
     Route: 048
     Dates: start: 20090701, end: 20091214
  4. EXJADE [Suspect]
     Indication: IRON OVERLOAD
     Dosage: 500 MG, QID, ORAL, 10 MG/KG/DAY (1500 MG/DAY), ORAL
     Route: 048
     Dates: start: 20090414
  5. EXJADE [Suspect]
     Indication: TRANSFUSION RELATED COMPLICATION
     Dosage: 500 MG, QID, ORAL, 10 MG/KG/DAY (1500 MG/DAY), ORAL
     Route: 048
     Dates: start: 20090414
  6. FLUCONAZOLE [Concomitant]
  7. TACROLIMUS [Concomitant]
  8. PREDNISOLONE [Concomitant]
  9. PENICILLIN VK [Concomitant]

REACTIONS (2)
  - RENAL FAILURE ACUTE [None]
  - BLOOD CREATININE INCREASED [None]
